FAERS Safety Report 23083398 (Version 1)
Quarter: 2023Q4

REPORT INFORMATION
  Report Type: Spontaneous
  Country: US (occurrence: None)
  Receive Date: 20231018
  Receipt Date: 20231018
  Transmission Date: 20240110
  Serious: Yes (Hospitalization)
  Sender: FDA-Public Use
  Company Number: None

PATIENT
  Age: 77 Year
  Sex: Male
  Weight: 76 kg

DRUGS (1)
  1. PEMBROLIZUMAB [Suspect]
     Active Substance: PEMBROLIZUMAB
     Route: 042
     Dates: start: 20210916, end: 20221123

REACTIONS (5)
  - Cough [None]
  - Dyspnoea [None]
  - Autoimmune lung disease [None]
  - Infection [None]
  - Disease progression [None]

NARRATIVE: CASE EVENT DATE: 20221201
